FAERS Safety Report 13477446 (Version 1)
Quarter: 2017Q2

REPORT INFORMATION
  Report Type: Spontaneous
  Country: US (occurrence: US)
  Receive Date: 20170425
  Receipt Date: 20170425
  Transmission Date: 20170830
  Serious: Yes (Life-Threatening, Hospitalization, Disabling, Other)
  Sender: FDA-Public Use
  Company Number: None

PATIENT
  Age: 19 Year
  Sex: Female
  Weight: 42.1 kg

DRUGS (1)
  1. ACETAMINOPHEN. [Suspect]
     Active Substance: ACETAMINOPHEN
     Indication: SUICIDE ATTEMPT
     Route: 048
     Dates: start: 20160519, end: 20160523

REACTIONS (5)
  - Drug-induced liver injury [None]
  - Vomiting [None]
  - Hepatic enzyme increased [None]
  - Suicide attempt [None]
  - Abdominal pain [None]

NARRATIVE: CASE EVENT DATE: 20160519
